FAERS Safety Report 18742149 (Version 1)
Quarter: 2021Q1

REPORT INFORMATION
  Report Type: Spontaneous
  Country: DE (occurrence: DE)
  Receive Date: 20210114
  Receipt Date: 20210114
  Transmission Date: 20210419
  Serious: Yes (Disabling, Other)
  Sender: FDA-Public Use
  Company Number: DE-MYLANLABS-2021M1001791

PATIENT
  Age: 78 Year
  Sex: Female

DRUGS (1)
  1. SIMVASTATIN. [Suspect]
     Active Substance: SIMVASTATIN
     Indication: BLOOD CHOLESTEROL INCREASED
     Dosage: 10 MILLIGRAM, QD
     Route: 048
     Dates: start: 2005, end: 202005

REACTIONS (6)
  - Tendon rupture [Recovered/Resolved with Sequelae]
  - Rotator cuff syndrome [Recovered/Resolved with Sequelae]
  - Skin exfoliation [Unknown]
  - Myalgia [Recovering/Resolving]
  - Herpes zoster [Unknown]
  - Arthralgia [Unknown]

NARRATIVE: CASE EVENT DATE: 2010
